FAERS Safety Report 5320172-4 (Version None)
Quarter: 2007Q2

REPORT INFORMATION
  Report Type: 
  Country: None (occurrence: None)
  Receive Date: 20070509
  Receipt Date: 20070507
  Transmission Date: 20071010
  Serious: Yes (Disabling)
  Sender: FDA-Public Use
  Company Number: GB-BRISTOL-MYERS SQUIBB COMPANY-13715503

PATIENT
  Age: 47 Year
  Sex: Female
  Weight: 100 kg

DRUGS (5)
  1. ABILIFY [Suspect]
     Indication: MAJOR DEPRESSION
     Route: 048
     Dates: start: 20050101
  2. ATARAX [Concomitant]
     Route: 048
     Dates: start: 20040101
  3. MIRTAZAPINE [Concomitant]
     Route: 048
     Dates: start: 20040101
  4. TEMAZEPAM [Concomitant]
     Route: 048
     Dates: start: 20040101
  5. LEVOTHYROXINE SODIUM [Concomitant]
     Route: 048
     Dates: start: 20040101

REACTIONS (3)
  - DRUG WITHDRAWAL SYNDROME [None]
  - HALLUCINATION, VISUAL [None]
  - IMPAIRED DRIVING ABILITY [None]
